FAERS Safety Report 8225081-9 (Version None)
Quarter: 2012Q1

REPORT INFORMATION
  Report Type: 
  Country: None (occurrence: None)
  Receive Date: 20120321
  Receipt Date: 20120308
  Transmission Date: 20120608
  Serious: No
  Sender: FDA-Public Use
  Company Number: US-B.I. PHARMACEUTICALS,INC./RIDGEFIELD-2012-BP-04408BP

PATIENT
  Sex: Female

DRUGS (5)
  1. EFFEXOR [Concomitant]
     Indication: DEPRESSION
     Route: 048
     Dates: start: 20040101
  2. LAMICTAL [Concomitant]
     Indication: MOOD ALTERED
     Route: 048
     Dates: start: 20040101
  3. VALIUM [Concomitant]
     Route: 048
     Dates: start: 20110101
  4. VALIUM [Concomitant]
     Indication: ANXIETY
     Route: 048
     Dates: start: 20110101
  5. SPIRIVA [Suspect]
     Indication: CHRONIC OBSTRUCTIVE PULMONARY DISEASE
     Dosage: 18 MCG
     Route: 048
     Dates: start: 20120301

REACTIONS (4)
  - CHEST PAIN [None]
  - PYREXIA [None]
  - EAR PAIN [None]
  - INCREASED UPPER AIRWAY SECRETION [None]
